FAERS Safety Report 5588025-4 (Version None)
Quarter: 2008Q1

REPORT INFORMATION
  Report Type: 
  Country: None (occurrence: None)
  Receive Date: 20080109
  Receipt Date: 20080109
  Transmission Date: 20080703
  Serious: Yes (Other)
  Sender: FDA-Public Use
  Company Number: None

PATIENT
  Sex: Female
  Weight: 68.3117 kg

DRUGS (4)
  1. ETHYOL [Suspect]
     Indication: PROPHYLAXIS
     Dosage: 500 MG QD (ORDERED:)(M THRU F) SUBCUT.
     Route: 058
     Dates: start: 20071210
  2. ETHYOL [Suspect]
     Indication: PROPHYLAXIS
     Dosage: 500 MG QD (ORDERED:)(M THRU F) SUBCUT.
     Route: 058
     Dates: start: 20071214
  3. ETHYOL [Suspect]
     Indication: PROPHYLAXIS
     Dosage: 500 MG QD (ORDERED:)(M THRU F) SUBCUT.
     Route: 058
     Dates: start: 20071217
  4. ETHYOL [Suspect]
     Indication: PROPHYLAXIS
     Dosage: 500 MG QD (ORDERED:)(M THRU F) SUBCUT.
     Route: 058
     Dates: start: 20071219

REACTIONS (3)
  - BODY TEMPERATURE INCREASED [None]
  - INJECTION SITE RASH [None]
  - RASH GENERALISED [None]
